FAERS Safety Report 24659000 (Version 1)
Quarter: 2024Q4

REPORT INFORMATION
  Report Type: Spontaneous
  Country: US (occurrence: None)
  Receive Date: 20241120
  Receipt Date: 20241120
  Transmission Date: 20250115
  Serious: Yes (Other)
  Sender: Public
  Company Number: None

PATIENT
  Age: 70 Year
  Sex: Female
  Weight: 72.57 kg

DRUGS (1)
  1. TECHNETIUM TC-99M METHYLENE DIPHOSPHONATE [Suspect]
     Active Substance: TECHNETIUM TC-99M METHYLENE DIPHOSPHONATE
     Indication: Pain in extremity
     Dates: start: 20240802, end: 20240827

REACTIONS (1)
  - Pain [None]

NARRATIVE: CASE EVENT DATE: 20240827
